FAERS Safety Report 15735831 (Version 1)
Quarter: 2018Q4

REPORT INFORMATION
  Report Type: Report from Study
  Country: JP (occurrence: JP)
  Receive Date: 20181218
  Receipt Date: 20181218
  Transmission Date: 20190205
  Serious: Yes (Death)
  Sender: FDA-Public Use
  Company Number: JP-EISAI MEDICAL RESEARCH-EC-2018-049409

PATIENT
  Age: 84 Year
  Sex: Male
  Weight: 38 kg

DRUGS (8)
  1. FYCOMPA [Suspect]
     Active Substance: PERAMPANEL
     Indication: PARTIAL SEIZURES
     Route: 048
     Dates: start: 20181003, end: 20181011
  2. MAGNESIUM OXIDE. [Concomitant]
     Active Substance: MAGNESIUM OXIDE
  3. PANTOSIN [Concomitant]
     Active Substance: PANTETHINE
  4. E KEPPRA [Concomitant]
     Active Substance: LEVETIRACETAM
  5. LANSOPRAZOLE. [Concomitant]
     Active Substance: LANSOPRAZOLE
  6. GASCON [Concomitant]
     Active Substance: DIMETHICONE
  7. BICALUTAMIDE. [Concomitant]
     Active Substance: BICALUTAMIDE
  8. URIEF [Concomitant]
     Active Substance: SILODOSIN

REACTIONS (1)
  - Death [Fatal]

NARRATIVE: CASE EVENT DATE: 20181011
